FAERS Safety Report 5452625-2 (Version None)
Quarter: 2007Q3

REPORT INFORMATION
  Report Type: 
  Country: None (occurrence: None)
  Receive Date: 20070914
  Receipt Date: 20070913
  Transmission Date: 20080115
  Serious: Yes (Other)
  Sender: FDA-Public Use
  Company Number: US-BRISTOL-MYERS SQUIBB COMPANY-13904933

PATIENT

DRUGS (1)
  1. IFOSFAMIDE [Suspect]

REACTIONS (1)
  - DELUSION [None]
